FAERS Safety Report 6133143-5 (Version None)
Quarter: 2009Q1

REPORT INFORMATION
  Report Type: 
  Country: None (occurrence: None)
  Receive Date: 20090326
  Receipt Date: 20090325
  Transmission Date: 20090719
  Serious: Yes (Other)
  Sender: FDA-Public Use
  Company Number: US-PFIZER INC-2007104586

PATIENT
  Sex: Female
  Weight: 68 kg

DRUGS (5)
  1. NEURONTIN [Suspect]
  2. LYRICA [Suspect]
     Indication: CLUSTER HEADACHE
  3. GABAPENTIN [Suspect]
     Indication: CLUSTER HEADACHE
     Dates: start: 20071129
  4. DARVOCET [Suspect]
     Indication: ARTHRITIS
  5. AMITRIPTYLINE [Concomitant]

REACTIONS (15)
  - ABDOMINAL DISCOMFORT [None]
  - CARDIAC MURMUR [None]
  - CAROTID ARTERY OCCLUSION [None]
  - COLD SWEAT [None]
  - DEPRESSION [None]
  - DRUG INEFFECTIVE [None]
  - DRY MOUTH [None]
  - DYSPHAGIA [None]
  - EXTRASYSTOLES [None]
  - HEADACHE [None]
  - HEART VALVE INCOMPETENCE [None]
  - HYPERTONIC BLADDER [None]
  - MYALGIA [None]
  - NERVOUS SYSTEM DISORDER [None]
  - SOCIAL PHOBIA [None]
